FAERS Safety Report 14471440 (Version 2)
Quarter: 2018Q1

REPORT INFORMATION
  Report Type: Spontaneous
  Country: CA (occurrence: CA)
  Receive Date: 20180131
  Receipt Date: 20180213
  Transmission Date: 20180509
  Serious: Yes (Hospitalization, Other)
  Sender: FDA-Public Use
  Company Number: PHHY2018CA013156

PATIENT
  Age: 41 Year
  Sex: Female

DRUGS (3)
  1. JADENU [Suspect]
     Active Substance: DEFERASIROX
     Indication: THALASSAEMIA BETA
     Dosage: 720 MG, QD
     Route: 048
     Dates: start: 20170301, end: 20171212
  2. CALCIUM CARBONATE. [Concomitant]
     Active Substance: CALCIUM CARBONATE
     Indication: PRODUCT USED FOR UNKNOWN INDICATION
     Dosage: UNK
     Route: 065
  3. VITAMIN D [Concomitant]
     Active Substance: CHOLECALCIFEROL
     Indication: PRODUCT USED FOR UNKNOWN INDICATION
     Dosage: UNK
     Route: 065

REACTIONS (10)
  - Hypophosphataemia [Recovered/Resolved]
  - Abdominal pain upper [Recovered/Resolved]
  - Haematuria [Recovered/Resolved]
  - Renal tubular acidosis [Recovered/Resolved]
  - Hypokalaemia [Recovered/Resolved]
  - Fanconi syndrome [Recovered/Resolved]
  - Abdominal pain [Recovered/Resolved]
  - Duodenal ulcer [Recovered/Resolved]
  - Glycosuria [Recovered/Resolved]
  - Hypocalcaemia [Recovered/Resolved]

NARRATIVE: CASE EVENT DATE: 201705
